FAERS Safety Report 20538705 (Version 1)
Quarter: 2022Q1

REPORT INFORMATION
  Report Type: Spontaneous
  Country: CA (occurrence: CA)
  Receive Date: 20220302
  Receipt Date: 20220302
  Transmission Date: 20220423
  Serious: Yes (Other)
  Sender: FDA-Public Use
  Company Number: CA-JNJFOC-20210842957

PATIENT
  Age: 38 Year
  Sex: Male
  Weight: 102 kg

DRUGS (1)
  1. REMICADE [Suspect]
     Active Substance: INFLIXIMAB
     Indication: Crohn^s disease
     Route: 042

REACTIONS (6)
  - Atrial fibrillation [Unknown]
  - Haemorrhage [Unknown]
  - Ulcer haemorrhage [Unknown]
  - Oesophagitis [Unknown]
  - Off label use [Unknown]
  - Product use issue [Unknown]
